FAERS Safety Report 6004449-5 (Version None)
Quarter: 2008Q4

REPORT INFORMATION
  Report Type: 
  Country: None (occurrence: None)
  Receive Date: 20081216
  Receipt Date: 20081208
  Transmission Date: 20090506
  Serious: Yes (Hospitalization, Disabling)
  Sender: FDA-Public Use
  Company Number: US-MERCK-0809USA03875

PATIENT
  Age: 80 Year
  Sex: Female

DRUGS (17)
  1. FOSAMAX PLUS D [Suspect]
     Indication: OSTEOPOROSIS
     Route: 048
     Dates: start: 20060901, end: 20080301
  2. FOSAMAX [Suspect]
     Indication: OSTEOPOROSIS
     Route: 048
     Dates: start: 19990719, end: 20060901
  3. SYNTHROID [Concomitant]
     Route: 048
     Dates: start: 20060101
  4. HYDROCHLOROTHIAZIDE [Concomitant]
     Route: 048
     Dates: start: 20060101
  5. NEURONTIN [Concomitant]
     Route: 048
     Dates: start: 20060101, end: 20070329
  6. NEURONTIN [Concomitant]
     Route: 048
     Dates: start: 20070329
  7. ATENOLOL [Concomitant]
     Route: 048
     Dates: start: 20060101
  8. PLAQUENIL [Concomitant]
     Route: 048
     Dates: start: 20060101
  9. PRILOSEC [Concomitant]
     Route: 048
     Dates: start: 20060101
  10. BENICAR [Concomitant]
     Route: 048
     Dates: start: 20060101
  11. VYTORIN [Concomitant]
     Route: 048
     Dates: start: 20060101
  12. FLEXERIL [Concomitant]
     Route: 048
     Dates: start: 20060101
  13. VITAMINS (UNSPECIFIED) [Concomitant]
     Route: 048
     Dates: start: 20060101
  14. COLACE [Concomitant]
     Route: 048
     Dates: start: 20060101
  15. FERROUS SULFATE [Concomitant]
     Route: 048
     Dates: start: 20070329
  16. FOLIC ACID [Concomitant]
     Route: 048
     Dates: start: 20070329
  17. LABETALOL HYDROCHLORIDE [Concomitant]
     Route: 048
     Dates: start: 20070329

REACTIONS (9)
  - ADVERSE DRUG REACTION [None]
  - ANAEMIA POSTOPERATIVE [None]
  - FALL [None]
  - FEMUR FRACTURE [None]
  - HIP FRACTURE [None]
  - HYPOTENSION [None]
  - OESOPHAGEAL STENOSIS [None]
  - SYNCOPE [None]
  - URINE OUTPUT DECREASED [None]
